FAERS Safety Report 17983186 (Version 1)
Quarter: 2020Q3

REPORT INFORMATION
  Report Type: Spontaneous
  Country: US (occurrence: US)
  Receive Date: 20200706
  Receipt Date: 20200706
  Transmission Date: 20201103
  Serious: Yes (Hospitalization, Other)
  Sender: FDA-Public Use
  Company Number: US-ADVANZ PHARMA-202006006798

PATIENT

DRUGS (2)
  1. CLONIDINE. [Suspect]
     Active Substance: CLONIDINE
     Dosage: UNK
  2. NORKETAMINE [Suspect]
     Active Substance: NORKETAMINE
     Dosage: UNK

REACTIONS (5)
  - Toxicity to various agents [Unknown]
  - Prescription drug used without a prescription [Unknown]
  - Mental impairment [Recovering/Resolving]
  - Respiratory depression [Unknown]
  - Dyspnoea [Recovering/Resolving]
